FAERS Safety Report 4578474-5 (Version None)
Quarter: 2005Q1

REPORT INFORMATION
  Report Type: 
  Country: None (occurrence: None)
  Receive Date: 20050211
  Receipt Date: 20050202
  Transmission Date: 20050727
  Serious: Yes (Other)
  Sender: FDA-Public Use
  Company Number: DE-JNJFOC-20050201113

PATIENT
  Age: 73 Year
  Sex: Male

DRUGS (16)
  1. RISPERDAL [Suspect]
  2. RISPERDAL [Suspect]
  3. RISPERDAL [Suspect]
  4. RISPERDAL [Suspect]
     Indication: DRUG USE FOR UNKNOWN INDICATION
  5. REMERGIL [Interacting]
  6. REMERGIL [Interacting]
  7. REMERGIL [Interacting]
     Indication: DRUG USE FOR UNKNOWN INDICATION
  8. LORAZEPAM [Concomitant]
  9. LORAZEPAM [Concomitant]
  10. LORAZEPAM [Concomitant]
  11. LORAZEPAM [Concomitant]
  12. ASPIRIN [Concomitant]
  13. ASPIRIN [Concomitant]
  14. XANEF [Concomitant]
  15. UNAT [Concomitant]
  16. KALINOR [Concomitant]

REACTIONS (7)
  - ALCOHOLISM [None]
  - BONE MARROW DISORDER [None]
  - BONE MARROW TOXICITY [None]
  - DRUG INTERACTION [None]
  - LACERATION [None]
  - PANCYTOPENIA [None]
  - SUICIDE ATTEMPT [None]
